FAERS Safety Report 4797459-7 (Version None)
Quarter: 2005Q4

REPORT INFORMATION
  Report Type: 
  Country: None (occurrence: None)
  Receive Date: 20051006
  Receipt Date: 20051006
  Transmission Date: 20060501
  Serious: Yes (Life-Threatening)
  Sender: FDA-Public Use
  Company Number: None

PATIENT
  Age: 40 Year
  Sex: Female

DRUGS (4)
  1. ZIDOVUDINE [Suspect]
     Indication: HIV INFECTION
     Dosage: 300MG PO BID
     Route: 048
     Dates: start: 20040915, end: 20041110
  2. IBUPROFEN [Concomitant]
  3. TENOFOVIR [Concomitant]
  4. RITONAVIR [Concomitant]

REACTIONS (9)
  - DYSPNOEA [None]
  - FATIGUE [None]
  - HAEMATOCRIT DECREASED [None]
  - HAEMOGLOBIN DECREASED [None]
  - HEADACHE [None]
  - MEAN CELL HAEMOGLOBIN DECREASED [None]
  - MEAN CELL VOLUME DECREASED [None]
  - MIDDLE INSOMNIA [None]
  - WHITE BLOOD CELL COUNT DECREASED [None]
